FAERS Safety Report 10230780 (Version 1)
Quarter: 2014Q2

REPORT INFORMATION
  Report Type: Spontaneous
  Country: ES (occurrence: ES)
  Receive Date: 20140611
  Receipt Date: 20140611
  Transmission Date: 20141212
  Serious: Yes (Death, Other)
  Sender: FDA-Public Use
  Company Number: PHHY2014ES071271

PATIENT
  Age: 74 Year
  Sex: Male

DRUGS (2)
  1. SANDOSTATIN LAR [Suspect]
     Indication: MENINGIOMA
     Dosage: 30 MG, ONCE EVERY 28 DAYS
     Route: 030
  2. SANDOSTATIN LAR [Suspect]
     Indication: OFF LABEL USE
     Dosage: 40 MG
     Route: 030

REACTIONS (2)
  - Death [Fatal]
  - Malignant neoplasm progression [Unknown]
